FAERS Safety Report 6295312-3 (Version None)
Quarter: 2009Q3

REPORT INFORMATION
  Report Type: 
  Country: None (occurrence: None)
  Receive Date: 20090803
  Receipt Date: 20090729
  Transmission Date: 20100115
  Serious: Yes (Hospitalization)
  Sender: FDA-Public Use
  Company Number: DE-AVENTIS-200911938DE

PATIENT
  Age: 67 Year
  Sex: Male

DRUGS (16)
  1. TAXOTERE [Suspect]
     Route: 042
     Dates: start: 20090710, end: 20090710
  2. CISPLATIN [Suspect]
     Route: 042
     Dates: start: 20090710, end: 20090710
  3. SODIUM CHLORIDE [Concomitant]
     Indication: DRUG USE FOR UNKNOWN INDICATION
  4. FORTECORTIN                        /00016001/ [Concomitant]
     Indication: DRUG USE FOR UNKNOWN INDICATION
     Route: 042
  5. KEVATRIL [Concomitant]
     Indication: DRUG USE FOR UNKNOWN INDICATION
     Route: 042
  6. TAVEGIL                            /00137201/ [Concomitant]
     Indication: DRUG USE FOR UNKNOWN INDICATION
     Route: 042
  7. PANTOZOL                           /01263202/ [Concomitant]
     Indication: DRUG USE FOR UNKNOWN INDICATION
     Route: 048
  8. KALINOR-BRAUSETABLETTEN [Concomitant]
     Indication: DRUG USE FOR UNKNOWN INDICATION
     Dosage: DOSE: 1--1-0
     Route: 048
  9. AVELOX [Concomitant]
     Indication: DRUG USE FOR UNKNOWN INDICATION
     Route: 048
  10. DIFLUCAN [Concomitant]
     Indication: DRUG USE FOR UNKNOWN INDICATION
     Dosage: DOSE: NOT REPORTED
  11. CALCIUM D3                         /01483701/ [Concomitant]
     Indication: DRUG USE FOR UNKNOWN INDICATION
     Dosage: DOSE: NOT REPORTED
  12. BELOC                              /00376903/ [Concomitant]
     Indication: DRUG USE FOR UNKNOWN INDICATION
     Dosage: DOSE: NOT REPORTED
  13. UNAT                               /01036501/ [Concomitant]
     Indication: DRUG USE FOR UNKNOWN INDICATION
     Dosage: DOSE: NOT REPORTED
  14. SPIRIVA [Concomitant]
     Indication: DRUG USE FOR UNKNOWN INDICATION
     Dosage: DOSE: NOT REPORTED
  15. SYMBICORT [Concomitant]
     Indication: DRUG USE FOR UNKNOWN INDICATION
     Dosage: DOSE: NOT REPORTED
  16. DECORTIN [Concomitant]
     Indication: DRUG USE FOR UNKNOWN INDICATION
     Dosage: DOSE: NOT REPORTED

REACTIONS (7)
  - CIRCULATORY COLLAPSE [None]
  - DEHYDRATION [None]
  - DIZZINESS [None]
  - HYPERGLYCAEMIA [None]
  - HYPERNATRAEMIA [None]
  - LOSS OF CONSCIOUSNESS [None]
  - ORTHOSTATIC HYPOTENSION [None]
